FAERS Safety Report 25226128 (Version 1)
Quarter: 2025Q2

REPORT INFORMATION
  Report Type: Report from Study
  Country: EG (occurrence: EG)
  Receive Date: 20250422
  Receipt Date: 20250422
  Transmission Date: 20250716
  Serious: Yes (Death)
  Sender: ROCHE
  Company Number: EG-ROCHE-10000263644

PATIENT
  Age: 50 Year
  Sex: Female

DRUGS (4)
  1. PHESGO [Suspect]
     Active Substance: HYALURONIDASE-ZZXF\PERTUZUMAB\TRASTUZUMAB
     Indication: Breast cancer
     Route: 042
     Dates: start: 20250312, end: 20250312
  2. DEXAMETHASONE SODIUM SUCCINATE\PHENYLEPHRINE HYDROCHLORIDE [Suspect]
     Active Substance: DEXAMETHASONE SODIUM SUCCINATE\PHENYLEPHRINE HYDROCHLORIDE
     Indication: Metastatic neoplasm
     Route: 065
  3. AMLODIPINE BESYLATE\VALSARTAN [Concomitant]
     Active Substance: AMLODIPINE BESYLATE\VALSARTAN
     Indication: Hypertension
     Route: 048
  4. NEBIVOLOL HYDROCHLORIDE [Concomitant]
     Active Substance: NEBIVOLOL HYDROCHLORIDE
     Indication: Hypertension
     Route: 050

REACTIONS (1)
  - Cerebrovascular accident [Fatal]

NARRATIVE: CASE EVENT DATE: 20250416
